FAERS Safety Report 13033851 (Version 1)
Quarter: 2016Q4

REPORT INFORMATION
  Report Type: Spontaneous
  Country: JP (occurrence: JP)
  Receive Date: 20161216
  Receipt Date: 20161216
  Transmission Date: 20170207
  Serious: Yes (Hospitalization)
  Sender: FDA-Public Use
  Company Number: JP-NODEN PHARMA DAC-NOD-2016-000054

PATIENT
  Age: 91 Year
  Sex: Female

DRUGS (1)
  1. RASILEZ [Suspect]
     Active Substance: ALISKIREN
     Indication: HYPERTENSION
     Dosage: 0.5 DF, UNK (75 MG)
     Route: 048

REACTIONS (2)
  - Incorrect dose administered [Unknown]
  - Pneumonia [Unknown]
